FAERS Safety Report 15427764 (Version 1)
Quarter: 2018Q3

REPORT INFORMATION
  Report Type: Spontaneous
  Country: US (occurrence: None)
  Receive Date: 20180926
  Receipt Date: 20180926
  Transmission Date: 20181010
  Serious: Yes (Hospitalization, Other)
  Sender: FDA-Public Use
  Company Number: RICON PHARMA, LLC-RIC201809-000949

PATIENT
  Age: 71 Year
  Sex: Male
  Weight: 90.7 kg

DRUGS (2)
  1. LIDOCAINE. [Suspect]
     Active Substance: LIDOCAINE
     Dosage: ROUGHLY 30 MINUTES FOLLOWING ED PRESENTATION AND SUBSEQUENTLY STARTED ON A LIDOCAINE CONTINUOUS INFU
     Route: 040
  2. MEXILETINE [Suspect]
     Active Substance: MEXILETINE

REACTIONS (3)
  - Neurotoxicity [Recovering/Resolving]
  - Drug interaction [Unknown]
  - Toxicity to various agents [Recovering/Resolving]
